FAERS Safety Report 15075629 (Version 6)
Quarter: 2019Q1

REPORT INFORMATION
  Report Type: Spontaneous
  Country: US (occurrence: US)
  Receive Date: 20180627
  Receipt Date: 20190322
  Transmission Date: 20190417
  Serious: No
  Sender: FDA-Public Use
  Company Number: US-SA-2018SA153386

PATIENT
  Age: 19 Year
  Sex: Female
  Weight: 78.91 kg

DRUGS (7)
  1. LARIN FE [Concomitant]
     Active Substance: ETHINYL ESTRADIOL\NORETHINDRONE ACETATE
  2. METHYLPREDNISOLONE. [Concomitant]
     Active Substance: METHYLPREDNISOLONE
  3. CETIRIZINE [Concomitant]
     Active Substance: CETIRIZINE HYDROCHLORIDE
  4. DESOXIMETASONE. [Concomitant]
     Active Substance: DESOXIMETASONE
  5. MONTELUKAST SODIUM. [Concomitant]
     Active Substance: MONTELUKAST SODIUM
  6. FLOVENT HFA [Concomitant]
     Active Substance: FLUTICASONE PROPIONATE
  7. DUPIXENT [Suspect]
     Active Substance: DUPILUMAB
     Indication: DERMATITIS ATOPIC
     Dosage: 300 MG, QOW; UNDER THE SKIN
     Route: 058
     Dates: start: 20180418

REACTIONS (9)
  - Erythema [Unknown]
  - Visual impairment [Unknown]
  - Product packaging issue [Unknown]
  - Urticaria [Unknown]
  - Pruritus [Unknown]
  - Dermatitis atopic [Unknown]
  - Nasopharyngitis [Unknown]
  - Urticaria [Unknown]
  - Eczema [Unknown]

NARRATIVE: CASE EVENT DATE: 201807
